FAERS Safety Report 5635360-7 (Version None)
Quarter: 2008Q1

REPORT INFORMATION
  Report Type: 
  Country: None (occurrence: None)
  Receive Date: 20080222
  Receipt Date: 20080213
  Transmission Date: 20080703
  Serious: Yes (Other)
  Sender: FDA-Public Use
  Company Number: ES-PFIZER INC-2008012550

PATIENT
  Sex: Female

DRUGS (1)
  1. TRANKIMAZIN [Suspect]
     Indication: DYSTONIA
     Route: 048

REACTIONS (6)
  - BLOOD PRESSURE DIASTOLIC INCREASED [None]
  - DISORIENTATION [None]
  - DIZZINESS [None]
  - DRUG WITHDRAWAL SYNDROME [None]
  - HEADACHE [None]
  - TACHYCARDIA [None]
